FAERS Safety Report 7672587-7 (Version None)
Quarter: 2011Q3

REPORT INFORMATION
  Report Type: 
  Country: None (occurrence: None)
  Receive Date: 20110809
  Receipt Date: 20110728
  Transmission Date: 20111222
  Serious: Yes (Hospitalization)
  Sender: FDA-Public Use
  Company Number: FR-VERTEX PHARMACEUTICALS INC.-AE-2011-000670

PATIENT
  Sex: Female
  Weight: 53 kg

DRUGS (7)
  1. PEGASYS [Concomitant]
     Indication: HEPATITIS C
     Route: 058
     Dates: start: 20110513, end: 20110624
  2. LORAZEPAM [Concomitant]
     Indication: INSOMNIA
  3. COPEGUS [Concomitant]
     Indication: HEPATITIS C
     Route: 048
     Dates: start: 20110513, end: 20110624
  4. VX-950 [Suspect]
     Indication: HEPATITIS C
     Route: 048
     Dates: start: 20110615, end: 20110624
  5. NEUPOGEN [Concomitant]
     Indication: PANCYTOPENIA
     Dates: start: 20110607, end: 20110624
  6. HAVLANE [Concomitant]
     Indication: ANXIETY
  7. LEVOTHYROXINE SODIUM [Concomitant]
     Indication: HYPOTHYROIDISM

REACTIONS (1)
  - RASH [None]
